FAERS Safety Report 4377039-8 (Version None)
Quarter: 2004Q2

REPORT INFORMATION
  Report Type: 
  Country: None (occurrence: None)
  Receive Date: 20040614
  Receipt Date: 20040603
  Transmission Date: 20050107
  Serious: Yes (Disabling)
  Sender: FDA-Public Use
  Company Number: FR-GLAXOSMITHKLINE-B0335062A

PATIENT
  Age: 52 Year
  Sex: Female
  Weight: 71 kg

DRUGS (5)
  1. ZOPHREN [Suspect]
     Dosage: 1UNIT PER DAY
     Route: 048
     Dates: start: 20040120, end: 20040220
  2. RADIOTHERAPY [Suspect]
     Dates: start: 20040120, end: 20040220
  3. ETHYOL [Suspect]
     Dosage: 375MG PER DAY
     Route: 042
     Dates: start: 20040120, end: 20040220
  4. SOLUPRED [Concomitant]
     Dosage: 20MG PER DAY
     Route: 048
     Dates: start: 20040210, end: 20040210
  5. KEAL [Concomitant]
     Dosage: 2UNIT PER DAY
     Route: 048
     Dates: start: 20040210, end: 20040515

REACTIONS (5)
  - ERYTHEMA [None]
  - PIGMENTATION DISORDER [None]
  - SKIN DESQUAMATION [None]
  - SKIN LESION [None]
  - TOXIC SKIN ERUPTION [None]
